FAERS Safety Report 21921620 (Version 1)
Quarter: 2023Q1

REPORT INFORMATION
  Report Type: Spontaneous
  Country: CA (occurrence: CA)
  Receive Date: 20230127
  Receipt Date: 20230127
  Transmission Date: 20230417
  Serious: Yes (Death, Other)
  Sender: FDA-Public Use
  Company Number: CA-BAUSCH-BL-2023-001421

PATIENT
  Age: 5 Month
  Sex: Female

DRUGS (17)
  1. DEXAMETHASONE [Suspect]
     Active Substance: DEXAMETHASONE
     Indication: Acute lymphocytic leukaemia
     Route: 065
  2. HYDROCORTISONE [Suspect]
     Active Substance: HYDROCORTISONE
     Indication: Acute lymphocytic leukaemia
     Route: 037
  3. PREDNISONE [Suspect]
     Active Substance: PREDNISONE
     Indication: Acute lymphocytic leukaemia
     Route: 048
  4. ASPARAGINASE [Suspect]
     Active Substance: ASPARAGINASE
     Indication: Acute lymphocytic leukaemia
     Route: 065
  5. CYCLOPHOSPHAMIDE [Suspect]
     Active Substance: CYCLOPHOSPHAMIDE
     Indication: Acute lymphocytic leukaemia
     Route: 042
  6. CYTARABINE [Suspect]
     Active Substance: CYTARABINE
     Indication: Acute lymphocytic leukaemia
     Dosage: POWDER FOR SOLUTION INTRATHECAL
     Route: 065
  7. DAUNORUBICIN [Suspect]
     Active Substance: DAUNORUBICIN
     Indication: Acute lymphocytic leukaemia
     Route: 042
  8. ETOPOSIDE [Suspect]
     Active Substance: ETOPOSIDE
     Indication: Acute lymphocytic leukaemia
     Route: 042
  9. FILGRASTIM [Suspect]
     Active Substance: FILGRASTIM
     Indication: Acute lymphocytic leukaemia
     Route: 065
  10. HYDROCORTISONE [Suspect]
     Active Substance: HYDROCORTISONE
     Indication: Acute lymphocytic leukaemia
     Route: 037
  11. LEUCOVORIN [Suspect]
     Active Substance: LEUCOVORIN
     Indication: Acute lymphocytic leukaemia
     Route: 042
  12. MERCAPTOPURINE [Suspect]
     Active Substance: MERCAPTOPURINE
     Indication: Acute lymphocytic leukaemia
     Route: 048
  13. METHOTREXATE [Suspect]
     Active Substance: METHOTREXATE
     Indication: Acute lymphocytic leukaemia
     Route: 065
  14. METHYLPREDNISOLONE [Suspect]
     Active Substance: METHYLPREDNISOLONE
     Indication: Acute lymphocytic leukaemia
     Route: 042
  15. ONCASPAR [Suspect]
     Active Substance: PEGASPARGASE
     Indication: Acute lymphocytic leukaemia
     Route: 030
  16. VINCRISTINE [Suspect]
     Active Substance: VINCRISTINE
     Indication: Acute lymphocytic leukaemia
     Route: 042
  17. VINCRISTINE [Suspect]
     Active Substance: VINCRISTINE
     Route: 042

REACTIONS (16)
  - Bacterial infection [Fatal]
  - Clostridium difficile colitis [Fatal]
  - Cystitis bacterial [Fatal]
  - Enteritis [Fatal]
  - Enterobacter infection [Fatal]
  - Gastroenteritis norovirus [Fatal]
  - Herpes simplex [Fatal]
  - Human bocavirus infection [Fatal]
  - Human herpesvirus 6 infection [Fatal]
  - Pneumatosis intestinalis [Fatal]
  - Pneumonia [Fatal]
  - Rhinovirus infection [Fatal]
  - Secondary immunodeficiency [Fatal]
  - Venous thrombosis [Fatal]
  - Viral infection [Fatal]
  - Off label use [Fatal]
